FAERS Safety Report 10246988 (Version 3)
Quarter: 2015Q1

REPORT INFORMATION
  Report Type: Spontaneous
  Country: US (occurrence: US)
  Receive Date: 20140619
  Receipt Date: 20150311
  Transmission Date: 20150720
  Serious: Yes (Disabling, Other)
  Sender: FDA-Public Use
  Company Number: US-MERCK-1406USA007339

PATIENT
  Sex: Male
  Weight: 92.63 kg

DRUGS (3)
  1. FINASTERIDE. [Suspect]
     Active Substance: FINASTERIDE
     Dosage: 5 MG, QD
     Route: 048
     Dates: start: 20110107
  2. FINASTERIDE. [Suspect]
     Active Substance: FINASTERIDE
     Indication: ALOPECIA
     Dosage: 1 MG, UNK
     Route: 048
     Dates: start: 2010, end: 2011
  3. PROPECIA [Suspect]
     Active Substance: FINASTERIDE
     Indication: ALOPECIA
     Dosage: 1 MG, QD
     Route: 048
     Dates: start: 20080508, end: 20130127

REACTIONS (31)
  - Ejaculation disorder [Not Recovered/Not Resolved]
  - Feeling abnormal [Not Recovered/Not Resolved]
  - Libido decreased [Not Recovered/Not Resolved]
  - Penis disorder [Unknown]
  - Tremor [Unknown]
  - Duodenitis [Unknown]
  - Lipoma [Unknown]
  - Erectile dysfunction [Not Recovered/Not Resolved]
  - Self esteem decreased [Unknown]
  - Psychiatric symptom [Unknown]
  - Polyp [Unknown]
  - Gastrooesophageal reflux disease [Unknown]
  - Urethral stenosis [Unknown]
  - Cognitive disorder [Not Recovered/Not Resolved]
  - Alanine aminotransferase decreased [Unknown]
  - Depression [Not Recovered/Not Resolved]
  - Sexual dysfunction [Not Recovered/Not Resolved]
  - Benign prostatic hyperplasia [Unknown]
  - Hypertension [Unknown]
  - Low density lipoprotein increased [Unknown]
  - Disturbance in sexual arousal [Unknown]
  - Spinal operation [Unknown]
  - Anxiety [Recovered/Resolved]
  - Onychomycosis [Unknown]
  - Extranodal marginal zone B-cell lymphoma (MALT type) [Unknown]
  - Urinary retention [Unknown]
  - Reproductive tract disorder [Not Recovered/Not Resolved]
  - Ejaculation failure [Not Recovered/Not Resolved]
  - Barrett^s oesophagus [Unknown]
  - Hypogonadism [Unknown]
  - Peyronie^s disease [Unknown]

NARRATIVE: CASE EVENT DATE: 20080530
